FAERS Safety Report 6981362-8 (Version None)
Quarter: 2010Q3

REPORT INFORMATION
  Report Type: 
  Country: None (occurrence: None)
  Receive Date: 20100909
  Receipt Date: 20100910
  Transmission Date: 20110219
  Serious: Yes (Death, Hospitalization)
  Sender: FDA-Public Use
  Company Number: 018132

PATIENT
  Sex: Male
  Weight: 99.8 kg

DRUGS (1)
  1. KEPPRA [Suspect]
     Indication: CONVULSION
     Dates: end: 20100724

REACTIONS (2)
  - GLIOBLASTOMA [None]
  - MALIGNANT NEOPLASM PROGRESSION [None]
